FAERS Safety Report 9071463 (Version 2)
Quarter: 2013Q1

REPORT INFORMATION
  Report Type: Report from Study
  Country: DE (occurrence: DE)
  Receive Date: 20130129
  Receipt Date: 20130207
  Transmission Date: 20140127
  Serious: Yes (Hospitalization)
  Sender: FDA-Public Use
  Company Number: DE-BAXTER-2013BAX003088

PATIENT
  Age: 57 None
  Sex: Female
  Weight: 111 kg

DRUGS (12)
  1. ENDOXAN 1G [Suspect]
     Indication: DIFFUSE LARGE B-CELL LYMPHOMA
     Route: 042
     Dates: start: 20120911
  2. ENDOXAN 1G [Suspect]
     Route: 042
     Dates: start: 20121206
  3. ETOPOSIDE [Suspect]
     Indication: DIFFUSE LARGE B-CELL LYMPHOMA
     Route: 042
     Dates: start: 20120911
  4. ETOPOSIDE [Suspect]
     Route: 042
     Dates: start: 20121206
  5. DOXORUBICIN [Suspect]
     Indication: DIFFUSE LARGE B-CELL LYMPHOMA
     Route: 042
     Dates: start: 20120911
  6. DOXORUBICIN [Suspect]
     Route: 042
     Dates: start: 20121206
  7. RITUXIMAB [Suspect]
     Indication: DIFFUSE LARGE B-CELL LYMPHOMA
     Route: 042
     Dates: start: 20120910
  8. RITUXIMAB [Suspect]
     Route: 042
     Dates: start: 20121218
  9. PREDNISONE [Suspect]
     Indication: DIFFUSE LARGE B-CELL LYMPHOMA
     Route: 048
     Dates: start: 20120911
  10. PREDNISONE [Suspect]
     Route: 048
     Dates: start: 20121206
  11. VINCRISTINE [Suspect]
     Indication: DIFFUSE LARGE B-CELL LYMPHOMA
     Route: 042
     Dates: start: 20120911
  12. VINCRISTINE [Suspect]
     Route: 042
     Dates: start: 20121206

REACTIONS (3)
  - Pneumonia [Not Recovered/Not Resolved]
  - Upper respiratory tract infection [Not Recovered/Not Resolved]
  - Odynophagia [Recovered/Resolved]
